FAERS Safety Report 8027360-7 (Version None)
Quarter: 2012Q1

REPORT INFORMATION
  Report Type: 
  Country: None (occurrence: None)
  Receive Date: 20120106
  Receipt Date: 20120103
  Transmission Date: 20120608
  Serious: Yes (Hospitalization)
  Sender: FDA-Public Use
  Company Number: NL-ASTELLAS-2012US000062

PATIENT
  Sex: Male

DRUGS (7)
  1. ASCAL [Concomitant]
     Indication: STENT PLACEMENT
     Dosage: 80 MG, UNKNOWN/D
     Route: 065
  2. TARCEVA [Suspect]
     Indication: LUNG NEOPLASM MALIGNANT
     Dosage: 150 MG, UID/QD
     Route: 048
     Dates: start: 20110501
  3. DIOVAN [Concomitant]
     Indication: STENT PLACEMENT
     Dosage: 80 MG, UID/QD
     Route: 065
  4. METOPROLOL [Concomitant]
     Indication: STENT PLACEMENT
     Dosage: 200 MG, UID/QD
     Route: 065
  5. CLOPIDOGREL BISULFATE [Concomitant]
     Indication: STENT PLACEMENT
     Dosage: 75 MG, UID/QD
     Route: 065
  6. PANTOPRAZOLE [Concomitant]
     Indication: PRODUCT USED FOR UNKNOWN INDICATION
     Dosage: 40 MG, UID/QD
     Route: 065
  7. LIPITOR [Concomitant]
     Indication: HYPERCHOLESTEROLAEMIA
     Dosage: 40 MG, UID/QD
     Route: 065

REACTIONS (2)
  - RASH [None]
  - NEPHROLITHIASIS [None]
